FAERS Safety Report 24403889 (Version 1)
Quarter: 2024Q4

REPORT INFORMATION
  Report Type: Spontaneous
  Country: FR (occurrence: FR)
  Receive Date: 20241007
  Receipt Date: 20241007
  Transmission Date: 20250114
  Serious: Yes (Hospitalization, Other)
  Sender: CELLTRION
  Company Number: None

PATIENT

DRUGS (2)
  1. RITUXIMAB [Suspect]
     Active Substance: RITUXIMAB
     Indication: Chronic lymphocytic leukaemia refractory
     Dosage: 830 MG, 1 CYCLE
     Route: 042
     Dates: start: 202211, end: 202302
  2. VENETOCLAX [Suspect]
     Active Substance: VENETOCLAX
     Indication: Chronic lymphocytic leukaemia refractory
     Dosage: 200 MG EVERY 24 HOURS
     Route: 048
     Dates: start: 202211, end: 20230808

REACTIONS (4)
  - Agranulocytosis [Recovered/Resolved]
  - Pneumonia [Recovering/Resolving]
  - Mycoplasma infection [Recovering/Resolving]
  - Overdose [Unknown]

NARRATIVE: CASE EVENT DATE: 20230808
